FAERS Safety Report 10097982 (Version 2)
Quarter: 2014Q2

REPORT INFORMATION
  Report Type: Spontaneous
  Country: US (occurrence: US)
  Receive Date: 20140423
  Receipt Date: 20140611
  Transmission Date: 20141212
  Serious: Yes (Other)
  Sender: FDA-Public Use
  Company Number: US-BRISTOL-MYERS SQUIBB COMPANY-20659173

PATIENT
  Age: 5 Decade
  Sex: Male

DRUGS (2)
  1. ABILIFY [Suspect]
     Route: 048
  2. ABILIFY MAINTENA INJECTION [Suspect]
     Indication: SCHIZOPHRENIA
     Dosage: LAST DOSE ON MAR2014
     Route: 065

REACTIONS (2)
  - Psychotic disorder [Unknown]
  - Psychiatric decompensation [Unknown]
